FAERS Safety Report 4618919-5 (Version None)
Quarter: 2005Q2

REPORT INFORMATION
  Report Type: 
  Country: None (occurrence: None)
  Receive Date: 20050310
  Receipt Date: 20041201
  Transmission Date: 20051028
  Serious: Yes (Hospitalization)
  Sender: FDA-Public Use
  Company Number: F03200400117

PATIENT
  Age: 30 Year
  Sex: Female
  Weight: 68.4 kg

DRUGS (13)
  1. OXALIPLATIN - SOLUTION - 229 MG [Suspect]
     Indication: ADENOID CYSTIC CARCINOMA
     Dosage: 228 MG Q3W - INTRAVENOUS NOS
     Route: 042
     Dates: start: 20041111, end: 20041111
  2. CAPECITABINE [Suspect]
     Indication: ADENOID CYSTIC CARCINOMA
     Dosage: 1500 MG BID - ORAL
     Route: 048
     Dates: start: 20041021, end: 20041124
  3. LORAZEPAM [Concomitant]
  4. BACLOFEN [Concomitant]
  5. HYDROMORPHONE HYDROCHLORIDE [Concomitant]
  6. ERYTHROMYCIN [Concomitant]
  7. GABAPENTIN [Concomitant]
  8. NORTRIPTYLINE HCL [Concomitant]
  9. METOCLOPRAMIDE INJECTION [Concomitant]
  10. DIAZEPAM [Concomitant]
  11. TIZANIDINE HYDROCHLORIDE [Concomitant]
  12. ZOLEDRONIC ACID [Concomitant]
  13. DARBEPOETIN ALFA [Concomitant]

REACTIONS (1)
  - HYPOAESTHESIA [None]
